FAERS Safety Report 9739192 (Version 1)
Quarter: 2013Q4

REPORT INFORMATION
  Report Type: Spontaneous
  Country: US (occurrence: US)
  Receive Date: 20131209
  Receipt Date: 20131209
  Transmission Date: 20140711
  Serious: No
  Sender: FDA-Public Use
  Company Number: US-PFIZER INC-2013351150

PATIENT
  Age: 63 Year
  Sex: Female
  Weight: 170 kg

DRUGS (9)
  1. LYRICA [Suspect]
     Indication: SPINAL COLUMN STENOSIS
     Dosage: 150 MG, 2X/DAY
     Dates: start: 2010
  2. CAPOTEN [Concomitant]
     Dosage: 50 MG, 2X/DAY
  3. NORCO [Concomitant]
     Dosage: 10 MG OF  HYDROCODONE BITARTRATE /325 MG OF ACETAMINOPHEN, 1X/DAY
  4. BABY ASPIRIN [Concomitant]
     Dosage: 81 MG, DAILY
  5. LOVASTATIN [Concomitant]
     Dosage: 20 MG, DAILY
  6. SERTRALINE HYDROCHLORIDE [Concomitant]
     Dosage: 50 MG, DAILY
  7. BUPROPION HYDROCHLORIDE [Concomitant]
     Dosage: 300 MG, DAILY
  8. SPIRONOLACTONE [Concomitant]
     Dosage: UNK, DAILY
  9. BUMETANIDE [Concomitant]
     Dosage: 1 MG, 2X/DAY

REACTIONS (4)
  - Off label use [Unknown]
  - Gait disturbance [Unknown]
  - Blood cholesterol increased [Unknown]
  - Drug ineffective for unapproved indication [Unknown]
